FAERS Safety Report 7349352-3 (Version None)
Quarter: 2011Q1

REPORT INFORMATION
  Report Type: 
  Country: None (occurrence: None)
  Receive Date: 20110314
  Receipt Date: 20100331
  Transmission Date: 20110831
  Serious: Yes (Other)
  Sender: FDA-Public Use
  Company Number: US-ABBOTT-10P-163-0633088-00

PATIENT
  Sex: Female

DRUGS (7)
  1. DEPAKOTE [Suspect]
     Indication: EPILEPSY
     Dates: end: 20060101
  2. SEROQUEL [Concomitant]
     Indication: AGITATION
  3. RISPERDAL [Concomitant]
     Indication: PRODUCT USED FOR UNKNOWN INDICATION
  4. ATIVAN [Concomitant]
     Indication: PRODUCT USED FOR UNKNOWN INDICATION
  5. KLONOPIN [Concomitant]
     Indication: PRODUCT USED FOR UNKNOWN INDICATION
  6. BENADRYL [Concomitant]
     Indication: PRODUCT USED FOR UNKNOWN INDICATION
  7. TOPAMAX [Concomitant]
     Indication: PRODUCT USED FOR UNKNOWN INDICATION

REACTIONS (8)
  - WHITE BLOOD CELL COUNT INCREASED [None]
  - COMA [None]
  - PLATELET COUNT DECREASED [None]
  - BLOOD DISORDER [None]
  - URINARY TRACT INFECTION [None]
  - WEIGHT INCREASED [None]
  - AMENORRHOEA [None]
  - STATUS EPILEPTICUS [None]
